FAERS Safety Report 19986317 (Version 6)
Quarter: 2022Q2

REPORT INFORMATION
  Report Type: Spontaneous
  Country: US (occurrence: US)
  Receive Date: 20211022
  Receipt Date: 20220630
  Transmission Date: 20220721
  Serious: No
  Sender: FDA-Public Use
  Company Number: US-DSJP-DSU-2021-134960AA

PATIENT
  Sex: Female

DRUGS (2)
  1. TURALIO [Suspect]
     Active Substance: PEXIDARTINIB HYDROCHLORIDE
     Indication: Connective tissue neoplasm
     Dosage: 400 MG, BID
     Route: 048
     Dates: start: 20210924
  2. TURALIO [Suspect]
     Active Substance: PEXIDARTINIB HYDROCHLORIDE
     Indication: Soft tissue neoplasm
     Dosage: 200 MG, BID
     Route: 048
     Dates: start: 20210924

REACTIONS (15)
  - Fatigue [Recovered/Resolved]
  - Musculoskeletal discomfort [Recovered/Resolved]
  - Cardiac disorder [Recovered/Resolved]
  - Extrasystoles [Recovered/Resolved]
  - Neuralgia [Recovered/Resolved]
  - Tumour pain [Recovered/Resolved]
  - Memory impairment [Recovered/Resolved]
  - Vaginal infection [Recovered/Resolved]
  - Vaginal pH abnormal [Recovered/Resolved]
  - Tearfulness [Recovered/Resolved]
  - Product dose omission issue [Recovered/Resolved]
  - Rash [Recovered/Resolved]
  - Paraesthesia [Recovered/Resolved]
  - Hypothalamo-pituitary disorder [Unknown]
  - Drug ineffective [Unknown]
